FAERS Safety Report 9354883 (Version 1)
Quarter: 2013Q2

REPORT INFORMATION
  Report Type: Spontaneous
  Country: US (occurrence: None)
  Receive Date: 20130618
  Receipt Date: 20130618
  Transmission Date: 20140414
  Serious: Yes (Other)
  Sender: FDA-Public Use
  Company Number: None

PATIENT
  Age: 74 Year
  Sex: Female
  Weight: 86.18 kg

DRUGS (5)
  1. LISINOPRIL [Suspect]
     Indication: HYPERTENSION
     Route: 048
     Dates: start: 20130501, end: 20130611
  2. LEVOTHYROXINE [Concomitant]
  3. LORATADINE [Concomitant]
  4. IBUPROPHEN [Concomitant]
  5. METAMUCIL [Concomitant]

REACTIONS (1)
  - Muscle tightness [None]
